FAERS Safety Report 7199369-7 (Version None)
Quarter: 2010Q4

REPORT INFORMATION
  Report Type: 
  Country: None (occurrence: None)
  Receive Date: 20101228
  Receipt Date: 20101221
  Transmission Date: 20110411
  Serious: No
  Sender: FDA-Public Use
  Company Number: US-TEVA-257224USA

PATIENT
  Sex: Female

DRUGS (7)
  1. COPAXONE [Suspect]
     Indication: MULTIPLE SCLEROSIS
     Route: 058
  2. NUVIGIL [Concomitant]
  3. NAPROXEN [Concomitant]
  4. BACLOFEN [Concomitant]
  5. DICLOFENAC [Concomitant]
  6. AMANTADINE [Concomitant]
  7. DEPO-PROVERA [Concomitant]

REACTIONS (2)
  - BLOOD CREATINE PHOSPHOKINASE INCREASED [None]
  - PAIN IN EXTREMITY [None]
